FAERS Safety Report 12803955 (Version 1)
Quarter: 2016Q4

REPORT INFORMATION
  Report Type: Spontaneous
  Country: US (occurrence: US)
  Receive Date: 20161001
  Receipt Date: 20161001
  Transmission Date: 20170207
  Serious: Yes (Disabling)
  Sender: FDA-Public Use
  Company Number: None

PATIENT
  Age: 13 Year
  Sex: Female
  Weight: 42.75 kg

DRUGS (4)
  1. NORDIC NATURALS OMEGA 3 GUMMY WORMS [Concomitant]
  2. ANIMAL PARADE KID GREENZ [Concomitant]
  3. MONTELUKAST SODIUM CHEWABLE [Suspect]
     Active Substance: MONTELUKAST SODIUM
     Indication: MULTIPLE ALLERGIES
     Dosage: ?          QUANTITY:180 TABLET(S);?
     Route: 048
     Dates: start: 20160509, end: 20161001
  4. AIRBORNE [Concomitant]
     Active Substance: HERBALS\MINERALS\VITAMINS

REACTIONS (7)
  - Mood altered [None]
  - Suicidal ideation [None]
  - Anxiety [None]
  - Abnormal behaviour [None]
  - Attention deficit/hyperactivity disorder [None]
  - Fear [None]
  - Peripheral coldness [None]

NARRATIVE: CASE EVENT DATE: 20160705
